FAERS Safety Report 14955822 (Version 1)
Quarter: 2018Q2

REPORT INFORMATION
  Report Type: Report from Study
  Country: GB (occurrence: GB)
  Receive Date: 20180531
  Receipt Date: 20180531
  Transmission Date: 20180711
  Serious: Yes (Hospitalization)
  Sender: FDA-Public Use
  Company Number: GB-ASPEN-GLO2017GB005421

PATIENT
  Age: 62 Year
  Sex: Male
  Weight: 85.2 kg

DRUGS (28)
  1. VELCADE [Suspect]
     Active Substance: BORTEZOMIB
     Indication: PLASMA CELL MYELOMA
     Dosage: DAILY DOSE: 1.3 MG/M2, DAYS 1, 4, 8 AND 11 THERAPY DURATION: 3 MONTHS 18 DAYS
     Route: 058
     Dates: start: 20170403, end: 20170720
  2. VENETOCLAX. [Suspect]
     Active Substance: VENETOCLAX
     Dosage: 800 MG
     Route: 048
     Dates: start: 20170807
  3. VENETOCLAX. [Suspect]
     Active Substance: VENETOCLAX
     Dosage: 200 MG
     Route: 048
     Dates: start: 20170803, end: 20170806
  4. IPRATROPIUM BROMIDE. [Concomitant]
     Active Substance: IPRATROPIUM BROMIDE
     Indication: CHRONIC OBSTRUCTIVE PULMONARY DISEASE
     Dosage: 2 MG
     Route: 048
     Dates: start: 20170516
  5. DUAKLIR GENUAIR [Concomitant]
     Active Substance: ACLIDINIUM BROMIDE\FORMOTEROL FUMARATE
     Indication: CHRONIC OBSTRUCTIVE PULMONARY DISEASE
     Dosage: 2 UNK, INHALATION
     Route: 055
     Dates: start: 20170517
  6. FUROSEMIDE. [Concomitant]
     Active Substance: FUROSEMIDE
     Indication: OLIGURIA
     Dosage: 40 MG
     Route: 042
     Dates: start: 20170516, end: 20170517
  7. FUROSEMIDE. [Concomitant]
     Active Substance: FUROSEMIDE
     Indication: FLUID RETENTION
     Dosage: 40 UNK
     Route: 048
     Dates: start: 20170606
  8. VENETOCLAX. [Suspect]
     Active Substance: VENETOCLAX
     Indication: PLASMA CELL MYELOMA
     Dosage: UNK
     Route: 048
     Dates: start: 20170403, end: 20170730
  9. AMITRIPTYLINE [Concomitant]
     Active Substance: AMITRIPTYLINE
     Indication: BACK PAIN
     Dosage: 75 MG
     Route: 048
     Dates: start: 2014
  10. PARACETAMOL [Concomitant]
     Active Substance: ACETAMINOPHEN
     Indication: BACK PAIN
     Dosage: 1 G
     Route: 048
     Dates: start: 2014
  11. METOCLOPRAMIDE. [Concomitant]
     Active Substance: METOCLOPRAMIDE
     Indication: PALLIATIVE CARE
     Dosage: 10 MG
     Route: 048
     Dates: start: 20170403
  12. SALBUTAMOL [Concomitant]
     Active Substance: ALBUTEROL
     Indication: CHRONIC OBSTRUCTIVE PULMONARY DISEASE
     Dosage: 10 MG
     Route: 048
     Dates: start: 20170516
  13. PREDNISOLONE. [Concomitant]
     Active Substance: PREDNISOLONE
     Indication: CHRONIC OBSTRUCTIVE PULMONARY DISEASE
     Dosage: 30 MG
     Route: 048
     Dates: start: 20170517
  14. CARBOCISTEINE [Concomitant]
     Active Substance: CARBOCYSTEINE
     Indication: CHRONIC OBSTRUCTIVE PULMONARY DISEASE
     Dosage: 1500 MG
     Route: 048
     Dates: start: 2014
  15. DEXAMETHASONE. [Suspect]
     Active Substance: DEXAMETHASONE
     Dosage: REGIMEN #3 DAILY DOSE: 8 MG ON DAYS 1, 2, 4, 5, 8, 9, 11 AND 12
     Route: 048
     Dates: start: 20170721
  16. COTRIMOXAZOLE [Concomitant]
     Active Substance: SULFAMETHOXAZOLE\TRIMETHOPRIM
     Indication: PALLIATIVE CARE
     Dosage: 480 MG
     Route: 048
     Dates: start: 20170403
  17. DEXAMETHASONE. [Suspect]
     Active Substance: DEXAMETHASONE
     Dosage: REGIMEN #2 DAILY DOSE: 12 MG ON DAYS 1, 2, 4, 5, 8, 9, 11 AND 12 THERAPY DURATION: 1 MONTH 2 DAYS
     Route: 048
     Dates: start: 20170530, end: 20170701
  18. ORAMORPH [Concomitant]
     Active Substance: MORPHINE SULFATE
     Indication: ANALGESIC THERAPY
     Dosage: 20 MG
     Route: 048
     Dates: start: 2014
  19. ACICLOVIR [Concomitant]
     Active Substance: ACYCLOVIR
     Indication: PALLIATIVE CARE
     Dosage: 400 MG
     Route: 048
     Dates: start: 20170403
  20. AZITHROMYCIN ANHYDROUS. [Concomitant]
     Active Substance: AZITHROMYCIN ANHYDROUS
     Indication: CHRONIC OBSTRUCTIVE PULMONARY DISEASE
     Dosage: 500 MG
     Route: 048
     Dates: start: 20170516
  21. DEXAMETHASONE. [Suspect]
     Active Substance: DEXAMETHASONE
     Indication: PLASMA CELL MYELOMA
     Dosage: REGIMEN #1 DAILY DOSE: 20 MG ON DAYS 1, 2, 4, 5, 8, 9, 11 AND 12 THERAPY DURATION: 1 MONTH 4 DAYS
     Route: 048
     Dates: start: 20170403, end: 20170506
  22. PREGABALIN. [Concomitant]
     Active Substance: PREGABALIN
     Indication: BACK PAIN
     Dosage: 600 MG
     Route: 048
     Dates: start: 2014
  23. ALLOPURINOL. [Concomitant]
     Active Substance: ALLOPURINOL
     Indication: PALLIATIVE CARE
     Dosage: 300 MG
     Route: 048
     Dates: start: 20170403
  24. OMEPRAZOLE. [Concomitant]
     Active Substance: OMEPRAZOLE
     Indication: PROPHYLAXIS AGAINST GASTROINTESTINAL ULCER
     Dosage: 20 MG
     Route: 048
     Dates: start: 20170517
  25. FENTANYL. [Concomitant]
     Active Substance: FENTANYL
     Indication: BACK PAIN
     Dosage: 125 MCG, EVERY 72 HOURS
     Route: 061
     Dates: start: 2014
  26. AMITRIPTYLINE [Concomitant]
     Active Substance: AMITRIPTYLINE
     Indication: SEDATIVE THERAPY
  27. FUROSEMIDE. [Concomitant]
     Active Substance: FUROSEMIDE
     Dosage: 80 UNK
     Route: 042
     Dates: start: 20170517
  28. FRAGMIN [Concomitant]
     Active Substance: DALTEPARIN SODIUM
     Indication: THROMBOSIS PROPHYLAXIS
     Dosage: 5000 IU
     Route: 058
     Dates: start: 20170517

REACTIONS (1)
  - Chronic obstructive pulmonary disease [Recovered/Resolved]

NARRATIVE: CASE EVENT DATE: 20170731
